FAERS Safety Report 6590339-6 (Version None)
Quarter: 2010Q1

REPORT INFORMATION
  Report Type: 
  Country: None (occurrence: None)
  Receive Date: 20100219
  Receipt Date: 20100209
  Transmission Date: 20100710
  Serious: Yes (Hospitalization)
  Sender: FDA-Public Use
  Company Number: FR-KINGPHARMUSA00001-K201000154

PATIENT
  Age: 38 Year
  Sex: Male

DRUGS (5)
  1. ALTACE [Suspect]
     Dosage: UNK
  2. CONTRAST MEDIA [Suspect]
     Dosage: UNK
     Route: 042
  3. CERTICAN [Concomitant]
     Dosage: UNK
     Dates: start: 20091020
  4. MYFORTIC [Concomitant]
     Dosage: UNK
     Dates: start: 20090726
  5. SANDIMMUNE [Concomitant]
     Dosage: UNK
     Dates: end: 20091027

REACTIONS (2)
  - BLOOD CREATININE INCREASED [None]
  - RENAL ARTERY STENOSIS [None]
